FAERS Safety Report 5243852-8 (Version None)
Quarter: 2007Q1

REPORT INFORMATION
  Report Type: 
  Country: None (occurrence: None)
  Receive Date: 20070215
  Receipt Date: 20070129
  Transmission Date: 20070707
  Serious: Yes (Life-Threatening, Hospitalization)
  Sender: FDA-Public Use
  Company Number: DSA_29350_2007

PATIENT
  Age: 45 Year
  Sex: Male

DRUGS (4)
  1. DILTIAZEM [Suspect]
     Dosage: 8.4 G ONCE; PO
     Route: 048
  2. ISOTEN [Suspect]
     Dosage: 560 MG ONCE; PO
     Route: 048
  3. VENLAFAXINE HCL [Suspect]
     Dosage: 2.1 G ONCE; PO
     Route: 048
  4. ADVIL [Suspect]
     Dosage: 6 G ONCE; PO
     Route: 048

REACTIONS (7)
  - BRADYCARDIA [None]
  - CARDIAC ARREST [None]
  - CARDIOGENIC SHOCK [None]
  - CATHETER SITE HAEMORRHAGE [None]
  - IMPLANT SITE HAEMORRHAGE [None]
  - MULTIPLE DRUG OVERDOSE INTENTIONAL [None]
  - RESPIRATORY FAILURE [None]
